FAERS Safety Report 6631221-5 (Version None)
Quarter: 2010Q1

REPORT INFORMATION
  Report Type: 
  Country: None (occurrence: None)
  Receive Date: 20100312
  Receipt Date: 20100225
  Transmission Date: 20100710
  Serious: Yes (Life-Threatening)
  Sender: FDA-Public Use
  Company Number: 2008BI006707

PATIENT
  Age: 45 Year
  Sex: Female

DRUGS (18)
  1. AVONEX [Suspect]
     Indication: RELAPSING-REMITTING MULTIPLE SCLEROSIS
     Route: 030
     Dates: start: 20071227
  2. OMNISCAN [Concomitant]
     Route: 042
     Dates: start: 20090525, end: 20090525
  3. MERISLON [Concomitant]
     Dates: start: 20071227, end: 20080108
  4. CEPHADOL [Concomitant]
     Dates: start: 20071227, end: 20080108
  5. GASTER D [Concomitant]
     Dates: start: 20071227, end: 20080108
  6. ALFAROL [Concomitant]
     Dates: start: 20071227, end: 20080108
  7. FUNGIZONE [Concomitant]
     Dates: start: 20071227, end: 20080108
  8. LENDORMIN [Concomitant]
     Dates: start: 20071227, end: 20080108
  9. PREDONINE [Concomitant]
     Dates: start: 20071227, end: 20071228
  10. PREDONINE [Concomitant]
     Dates: start: 20071229, end: 20071231
  11. PREDONINE [Concomitant]
     Dates: start: 20080101, end: 20080103
  12. ALBUMIN TANNATE [Concomitant]
     Dates: start: 20071227, end: 20071227
  13. MUCOSTA [Concomitant]
     Dates: start: 20071227, end: 20071227
  14. BIOFERMIN [Concomitant]
     Dates: start: 20071227, end: 20071227
  15. LAXONIN [Concomitant]
     Dates: start: 20071227
  16. LAXONIN [Concomitant]
     Dates: start: 20090609
  17. SELBEX [Concomitant]
     Dates: start: 20071227, end: 20080317
  18. SELBEX [Concomitant]
     Dates: start: 20090422

REACTIONS (10)
  - ADVERSE DRUG REACTION [None]
  - BLOOD ALBUMIN DECREASED [None]
  - BLOOD CHOLESTEROL INCREASED [None]
  - BLOOD URIC ACID DECREASED [None]
  - BRONCHITIS [None]
  - DYSPNOEA [None]
  - MENSTRUATION DELAYED [None]
  - PALPITATIONS [None]
  - PROTEIN TOTAL DECREASED [None]
  - VOMITING [None]
